FAERS Safety Report 9692760 (Version 3)
Quarter: 2014Q1

REPORT INFORMATION
  Report Type: Spontaneous
  Country: FR (occurrence: FR)
  Receive Date: 20131118
  Receipt Date: 20140311
  Transmission Date: 20141002
  Serious: Yes (Other)
  Sender: FDA-Public Use
  Company Number: FR-009507513-1310FRA013994

PATIENT
  Sex: Female

DRUGS (1)
  1. SINEMET UNSCORED TABLET [Suspect]
     Indication: PARKINSON^S DISEASE
     Dosage: 1 DF, QD
     Route: 048

REACTIONS (5)
  - Vertigo [Unknown]
  - Nausea [Unknown]
  - Medication error [Unknown]
  - Malaise [Unknown]
  - Wrong technique in drug usage process [Unknown]
